FAERS Safety Report 9742165 (Version 2)
Quarter: 2014Q2

REPORT INFORMATION
  Report Type: Other
  Country: GB (occurrence: GB)
  Receive Date: 20131210
  Receipt Date: 20140415
  Transmission Date: 20141212
  Serious: Yes (Life-Threatening, Hospitalization, Other)
  Sender: FDA-Public Use
  Company Number: GB-TARO PHARMACEUTICALS U.S.A., INC-2013SUN05134

PATIENT
  Age: 67 Year
  Sex: Female

DRUGS (6)
  1. WARFARIN [Suspect]
     Indication: ATRIAL FIBRILLATION
     Dosage: AS PER INR
     Route: 048
  2. LANSOPRAZOLE [Interacting]
     Indication: ABDOMINAL DISCOMFORT
     Dosage: 30 MG, OD
     Route: 048
     Dates: start: 20131115
  3. ADCAL-D3 [Concomitant]
     Dosage: UNK, QD
  4. ALENDRONIC ACID [Concomitant]
     Dosage: 70 MG PER WEEK
  5. SIMVASTATIN [Concomitant]
     Dosage: 20 MG, QD
  6. VERAPAMIL [Concomitant]
     Dosage: 120 MG, QD

REACTIONS (2)
  - Drug interaction [Unknown]
  - International normalised ratio increased [Recovering/Resolving]
